FAERS Safety Report 11073787 (Version 1)
Quarter: 2015Q2

REPORT INFORMATION
  Report Type: Report from Study
  Country: US (occurrence: US)
  Receive Date: 20150428
  Receipt Date: 20150428
  Transmission Date: 20150821
  Serious: Yes (Hospitalization, Other)
  Sender: FDA-Public Use
  Company Number: US-ACTELION-A-NJ2015-115724

PATIENT
  Age: 57 Year
  Sex: Female

DRUGS (3)
  1. COUMADIN [Concomitant]
     Active Substance: WARFARIN SODIUM
  2. VELETRI [Suspect]
     Active Substance: EPOPROSTENOL
     Dosage: 6.5 NG/KG, UNK
     Route: 042
     Dates: start: 201504
  3. VELETRI [Suspect]
     Active Substance: EPOPROSTENOL
     Indication: PULMONARY ARTERIAL HYPERTENSION
     Dosage: 7 NG/KG, PER MIN
     Route: 042
     Dates: start: 20150225, end: 201504

REACTIONS (10)
  - Tachycardia [Unknown]
  - Unresponsive to stimuli [Unknown]
  - Fall [Unknown]
  - Monoparesis [Unknown]
  - Drooling [Unknown]
  - Catheter site pruritus [Unknown]
  - Hypotension [Unknown]
  - Headache [Unknown]
  - Nausea [Not Recovered/Not Resolved]
  - Cerebrovascular accident [Unknown]
